FAERS Safety Report 6555274-8 (Version None)
Quarter: 2010Q1

REPORT INFORMATION
  Report Type: 
  Country: None (occurrence: None)
  Receive Date: 20100128
  Receipt Date: 20090225
  Transmission Date: 20100710
  Serious: No
  Sender: FDA-Public Use
  Company Number: A0770442A

PATIENT
  Sex: Female

DRUGS (2)
  1. WELLBUTRIN [Suspect]
     Route: 048
  2. NO CONCURRENT MEDICATION [Concomitant]

REACTIONS (1)
  - URINE ABNORMALITY [None]
